FAERS Safety Report 7264120-9 (Version None)
Quarter: 2011Q1

REPORT INFORMATION
  Report Type: 
  Country: None (occurrence: None)
  Receive Date: 20110130
  Receipt Date: 20110121
  Transmission Date: 20110831
  Serious: Yes (Hospitalization)
  Sender: FDA-Public Use
  Company Number: JP-BRISTOL-MYERS SQUIBB COMPANY-15263692

PATIENT
  Age: 44 Year
  Sex: Male
  Weight: 53 kg

DRUGS (3)
  1. CISPLATIN [Suspect]
     Indication: GASTROOESOPHAGEAL CANCER
     Dosage: RECENT INF-19AUG2010
     Route: 042
     Dates: start: 20100614, end: 20100819
  2. CETUXIMAB [Suspect]
     Indication: GASTROOESOPHAGEAL CANCER
     Dosage: RECENT INF-19AUG2010;TOTAL-9 INF;5MG/ML
     Route: 042
     Dates: start: 20100614, end: 20100819
  3. XELODA [Suspect]
     Indication: GASTROOESOPHAGEAL CANCER
     Dosage: RECENT INF-26AUG2010; ON DAY 1,15 DISCONTINUED ON 26AUG10 TAB
     Route: 048
     Dates: start: 20100614, end: 20100826

REACTIONS (1)
  - JAUNDICE CHOLESTATIC [None]
